FAERS Safety Report 5775413-6 (Version None)
Quarter: 2008Q2

REPORT INFORMATION
  Report Type: 
  Country: None (occurrence: None)
  Receive Date: 20080612
  Receipt Date: 20080528
  Transmission Date: 20081010
  Serious: Yes (Hospitalization, Other)
  Sender: FDA-Public Use
  Company Number: TPH-00047

PATIENT
  Age: 39 Year
  Sex: Female

DRUGS (1)
  1. TRIQUILAR [Suspect]
     Indication: ORAL CONTRACEPTION
     Dosage: ORAL
     Route: 048
     Dates: start: 20070101

REACTIONS (3)
  - FALL [None]
  - LOWER LIMB FRACTURE [None]
  - POLYMENORRHOEA [None]
